FAERS Safety Report 5620947-8 (Version None)
Quarter: 2008Q1

REPORT INFORMATION
  Report Type: 
  Country: None (occurrence: None)
  Receive Date: 20080208
  Receipt Date: 20080128
  Transmission Date: 20080703
  Serious: Yes (Other)
  Sender: FDA-Public Use
  Company Number: FR-PFIZER INC-2008009046

PATIENT

DRUGS (9)
  1. XANAX [Suspect]
  2. FLECAINIDE ACETATE [Concomitant]
  3. ECAZIDE [Concomitant]
  4. VERAPAMIL HYDROCHLORIDE [Concomitant]
  5. PREVISCAN [Concomitant]
  6. SERETIDE [Concomitant]
     Route: 055
  7. DEXERYL ^PASCUAL^ [Concomitant]
  8. KETUM [Concomitant]
  9. SINGULAIR [Concomitant]

REACTIONS (3)
  - GLOBAL AMNESIA [None]
  - LOSS OF CONSCIOUSNESS [None]
  - ROAD TRAFFIC ACCIDENT [None]
